FAERS Safety Report 4678316-3 (Version None)
Quarter: 2005Q2

REPORT INFORMATION
  Report Type: 
  Country: None (occurrence: None)
  Receive Date: 20050531
  Receipt Date: 20050531
  Transmission Date: 20051028
  Serious: No
  Sender: FDA-Public Use
  Company Number: None

PATIENT
  Age: 90 Year
  Sex: Female
  Weight: 49.5 kg

DRUGS (6)
  1. PROTONIX [Suspect]
     Indication: PROPHYLAXIS
     Dosage: PROTONIX   40 MG   ORAL
     Route: 048
     Dates: start: 20050525, end: 20050528
  2. ZOCOR [Concomitant]
  3. COREG [Concomitant]
  4. QUINAM [Concomitant]
  5. ALTACE [Concomitant]
  6. TYLENOL (CAPLET) [Concomitant]

REACTIONS (2)
  - PRURITUS [None]
  - RASH ERYTHEMATOUS [None]
